FAERS Safety Report 18678282 (Version 1)
Quarter: 2020Q4

REPORT INFORMATION
  Report Type: Spontaneous
  Country: US (occurrence: US)
  Receive Date: 20201230
  Receipt Date: 20201230
  Transmission Date: 20210114
  Serious: Yes (Other)
  Sender: FDA-Public Use
  Company Number: US-STRIDES ARCOLAB LIMITED-2020SP013035

PATIENT
  Age: 49 Year
  Sex: Male

DRUGS (6)
  1. LIDOCAINE. [Suspect]
     Active Substance: LIDOCAINE
     Indication: VENTRICULAR TACHYCARDIA
     Dosage: UNK
     Route: 065
  2. AMIODARONE [Suspect]
     Active Substance: AMIODARONE
     Indication: VENTRICULAR EXTRASYSTOLES
  3. MEXILETINE [Suspect]
     Active Substance: MEXILETINE
     Indication: VENTRICULAR TACHYCARDIA
     Dosage: UNK
     Route: 065
  4. MEXILETINE [Suspect]
     Active Substance: MEXILETINE
     Indication: VENTRICULAR EXTRASYSTOLES
  5. LIDOCAINE. [Suspect]
     Active Substance: LIDOCAINE
     Indication: VENTRICULAR EXTRASYSTOLES
  6. AMIODARONE [Suspect]
     Active Substance: AMIODARONE
     Indication: VENTRICULAR TACHYCARDIA
     Dosage: UNK
     Route: 065

REACTIONS (1)
  - Drug ineffective for unapproved indication [Unknown]
